FAERS Safety Report 7227898 (Version 3)
Quarter: 2013Q4

REPORT INFORMATION
  Report Type: Spontaneous
  Country: US (occurrence: US)
  Receive Date: 20091222
  Receipt Date: 20131203
  Transmission Date: 20140711
  Serious: Yes (Other)
  Sender: FDA-Public Use
  Company Number: US-ASTRAZENECA-2009UW12976

PATIENT
  Age: 57 Year
  Sex: Female
  Weight: 90.3 kg

DRUGS (7)
  1. CRESTOR [Suspect]
     Indication: BLOOD CHOLESTEROL INCREASED
     Route: 048
     Dates: end: 20131123
  2. ASPIRIN [Concomitant]
  3. CITALOPRAM [Concomitant]
     Indication: DEPRESSION
  4. CITALOPRAM [Concomitant]
     Indication: ANXIETY
  5. SYNTHROID [Concomitant]
     Indication: THYROID DISORDER
  6. PEPCID [Concomitant]
     Indication: GASTROOESOPHAGEAL REFLUX DISEASE
  7. DICLOFENAC [Concomitant]
     Indication: INFLAMMATION

REACTIONS (12)
  - Musculoskeletal discomfort [Unknown]
  - Head discomfort [Unknown]
  - Nerve compression [Unknown]
  - Anxiety [Unknown]
  - Inflammation [Unknown]
  - Gastrooesophageal reflux disease [Unknown]
  - Thyroid disorder [Unknown]
  - Dizziness [Unknown]
  - Asthenia [Unknown]
  - Muscular weakness [Unknown]
  - Depression [Unknown]
  - Drug dose omission [Not Recovered/Not Resolved]
